FAERS Safety Report 4809720-8 (Version None)
Quarter: 2005Q4

REPORT INFORMATION
  Report Type: 
  Country: None (occurrence: None)
  Receive Date: 20051024
  Receipt Date: 20051011
  Transmission Date: 20060501
  Serious: Yes (Hospitalization, Other)
  Sender: FDA-Public Use
  Company Number: HQWYE550020SEP05

PATIENT
  Age: 67 Year
  Sex: Male
  Weight: 105.8 kg

DRUGS (24)
  1. RAPAMUNE [Suspect]
     Indication: PROPHYLAXIS AGAINST TRANSPLANT REJECTION
     Dosage: SEE IMAGE, ORAL
     Route: 048
     Dates: start: 20050211, end: 20050901
  2. RAPAMUNE [Suspect]
     Indication: PROPHYLAXIS AGAINST TRANSPLANT REJECTION
     Dosage: SEE IMAGE, ORAL
     Route: 048
     Dates: start: 20050901, end: 20050901
  3. RAPAMUNE [Suspect]
     Indication: PROPHYLAXIS AGAINST TRANSPLANT REJECTION
     Dosage: SEE IMAGE, ORAL
     Route: 048
     Dates: start: 20050901
  4. RAPAMUNE [Suspect]
  5. ZENAPAX [Concomitant]
  6. PROGRAF [Concomitant]
  7. PREDNISONE [Concomitant]
  8. PREVACID [Concomitant]
  9. MULTIVITAMINS, PLAIN (MULTIVITAMINS, PLAIN) [Concomitant]
  10. LIPITOR [Concomitant]
  11. NORVASC [Concomitant]
  12. CLONIDINE [Concomitant]
  13. CARDURA [Concomitant]
  14. AVODART [Concomitant]
  15. BACTRIM [Concomitant]
  16. CALCIUM CARBONATE (CALCIUM CARBONATE) [Concomitant]
  17. FISH OIL, HYDROGENATED (FISH OIL, HYDROGENATED) [Concomitant]
  18. ASPIRIN [Concomitant]
  19. AMARYL [Concomitant]
  20. FERROUS SULFATE TAB [Concomitant]
  21. ARANESP [Concomitant]
  22. LANTUS [Concomitant]
  23. NOVOLOG [Concomitant]
  24. LASIX [Concomitant]

REACTIONS (4)
  - ERYTHEMA [None]
  - KIDNEY TRANSPLANT REJECTION [None]
  - POST PROCEDURAL COMPLICATION [None]
  - PYREXIA [None]
